FAERS Safety Report 16288933 (Version 1)
Quarter: 2019Q2

REPORT INFORMATION
  Report Type: Spontaneous
  Country: FI (occurrence: FI)
  Receive Date: 20190509
  Receipt Date: 20190509
  Transmission Date: 20190711
  Serious: Yes (Death, Hospitalization)
  Sender: FDA-Public Use
  Company Number: FI-ABBVIE-19S-055-2719207-00

PATIENT
  Age: 72 Year
  Sex: Male
  Weight: 46.8 kg

DRUGS (5)
  1. DUODOPA [Suspect]
     Active Substance: CARBIDOPA\LEVODOPA
     Dosage: 24 H TREATMENT
     Route: 050
     Dates: start: 20160318, end: 20171107
  2. DUODOPA [Suspect]
     Active Substance: CARBIDOPA\LEVODOPA
     Dosage: 16 H TREATMENT
     Route: 050
     Dates: start: 20171107, end: 20190219
  3. DUODOPA [Suspect]
     Active Substance: CARBIDOPA\LEVODOPA
     Indication: PARKINSON^S DISEASE
     Route: 050
     Dates: start: 20130826, end: 20130902
  4. DUODOPA [Suspect]
     Active Substance: CARBIDOPA\LEVODOPA
     Dosage: 16 H TREATMENT
     Route: 050
     Dates: start: 20130902, end: 20160318
  5. DUODOPA [Suspect]
     Active Substance: CARBIDOPA\LEVODOPA
     Dosage: CONTINUOUS ENTERAL ADMINISTRATION
     Route: 050
     Dates: start: 2019, end: 201903

REACTIONS (11)
  - Pyrexia [Not Recovered/Not Resolved]
  - Pneumonia [Fatal]
  - Mobility decreased [Unknown]
  - Weight decreased [Not Recovered/Not Resolved]
  - Dysphagia [Not Recovered/Not Resolved]
  - Aspiration [Unknown]
  - Parkinson^s disease [Fatal]
  - Dyskinesia [Unknown]
  - Paranoia [Unknown]
  - On and off phenomenon [Unknown]
  - Hyperkinesia [Unknown]

NARRATIVE: CASE EVENT DATE: 20170719
